FAERS Safety Report 8362159-3 (Version None)
Quarter: 2012Q2

REPORT INFORMATION
  Report Type: 
  Country: None (occurrence: None)
  Receive Date: 20120515
  Receipt Date: 20120508
  Transmission Date: 20120825
  Serious: Yes (Other)
  Sender: FDA-Public Use
  Company Number: GB-PFIZER INC-GB-WYE-G03948909

PATIENT
  Age: 72 Year
  Sex: Male

DRUGS (5)
  1. TRANEXAMIC ACID [Suspect]
     Dosage: 1 G, 3X/DAY
     Route: 065
     Dates: start: 20090706, end: 20090707
  2. GEMTUZUMAB OZOGAMICIN [Suspect]
     Indication: ACUTE MYELOID LEUKAEMIA
     Dosage: UNK
     Route: 065
     Dates: start: 20090619, end: 20090623
  3. CLOFARABINE [Suspect]
     Dosage: UNK
     Route: 065
     Dates: start: 20090619, end: 20090623
  4. DAUNORUBICIN HYDROCHLORIDE [Suspect]
     Dosage: UNK
     Route: 065
     Dates: start: 20090619, end: 20090623
  5. TRANEXAMIC ACID [Suspect]
     Dosage: 1 G, 3X/DAY
     Route: 065
     Dates: start: 20090624, end: 20090625

REACTIONS (1)
  - RASH PRURITIC [None]
